FAERS Safety Report 4713051-4 (Version None)
Quarter: 2005Q3

REPORT INFORMATION
  Report Type: 
  Country: None (occurrence: None)
  Receive Date: 20050712
  Receipt Date: 20050706
  Transmission Date: 20060218
  Serious: Yes (Other)
  Sender: FDA-Public Use
  Company Number: DEWYE111629APR03

PATIENT
  Age: 28 Year
  Sex: Female

DRUGS (1)
  1. TREVILOR RETARD (VENLAFAXINE HYDROCHLORIDE, CAPSULE, EXTENDED RELEASE, [Suspect]
     Indication: GENERALISED ANXIETY DISORDER
     Dosage: 75 MG 1X PER 1 DAY ORAL
     Route: 048

REACTIONS (2)
  - ABORTION SPONTANEOUS [None]
  - DRUG EXPOSURE DURING PREGNANCY [None]
